FAERS Safety Report 21273634 (Version 1)
Quarter: 2022Q3

REPORT INFORMATION
  Report Type: Spontaneous
  Country: US (occurrence: US)
  Receive Date: 20220831
  Receipt Date: 20220831
  Transmission Date: 20221026
  Serious: No
  Sender: FDA-Public Use
  Company Number: US-LUPIN PHARMACEUTICALS INC.-2022-10661

PATIENT
  Age: 68 Year
  Sex: Female

DRUGS (1)
  1. BUDESONIDE [Suspect]
     Active Substance: BUDESONIDE
     Indication: Nasal disorder
     Dosage: UNK
     Route: 065

REACTIONS (4)
  - Product prescribing error [Unknown]
  - Product use issue [Unknown]
  - Product storage error [Unknown]
  - No adverse event [Unknown]
